FAERS Safety Report 6783529-0 (Version None)
Quarter: 2010Q2

REPORT INFORMATION
  Report Type: 
  Country: None (occurrence: None)
  Receive Date: 20100622
  Receipt Date: 20100609
  Transmission Date: 20101027
  Serious: Yes (Hospitalization, Other)
  Sender: FDA-Public Use
  Company Number: FR-ALLERGAN-1007962US

PATIENT
  Age: 76 Year
  Sex: Female

DRUGS (10)
  1. TROSPIUM CHLORIDE UNK [Suspect]
     Indication: DRUG USE FOR UNKNOWN INDICATION
     Dosage: UNK
     Route: 048
     Dates: end: 20091031
  2. CELEBREX [Suspect]
     Indication: DRUG USE FOR UNKNOWN INDICATION
     Dosage: UNK
     Route: 048
     Dates: end: 20091031
  3. NEBILOX [Suspect]
     Indication: DRUG USE FOR UNKNOWN INDICATION
     Dosage: UNK
     Route: 048
     Dates: end: 20091031
  4. CRESTOR [Concomitant]
  5. ERCEFURYL [Concomitant]
  6. DICETEL [Concomitant]
  7. PIASCLEDINE [Concomitant]
  8. INIPOMP [Concomitant]
  9. LYRICA [Concomitant]
  10. SULFARLEM [Concomitant]

REACTIONS (3)
  - CONDITION AGGRAVATED [None]
  - RENAL FAILURE [None]
  - URINARY RETENTION [None]
